FAERS Safety Report 24874934 (Version 1)
Quarter: 2025Q1

REPORT INFORMATION
  Report Type: Spontaneous
  Country: AU (occurrence: AU)
  Receive Date: 20250122
  Receipt Date: 20250122
  Transmission Date: 20250408
  Serious: Yes (Hospitalization)
  Sender: ASTELLAS
  Company Number: AU-ASTELLAS-2025-AER-003010

PATIENT
  Sex: Male

DRUGS (2)
  1. PADCEV [Suspect]
     Active Substance: ENFORTUMAB VEDOTIN-EJFV
     Indication: Metastatic carcinoma of the bladder
     Route: 065
  2. PADCEV [Suspect]
     Active Substance: ENFORTUMAB VEDOTIN-EJFV
     Indication: Lung neoplasm malignant

REACTIONS (11)
  - Malaise [Unknown]
  - Delirium [Recovered/Resolved]
  - Pyrexia [Unknown]
  - Abdominal pain [Unknown]
  - Skin disorder [Unknown]
  - Erythema [Unknown]
  - Skin exfoliation [Unknown]
  - Decubitus ulcer [Unknown]
  - Blister [Unknown]
  - Skin haemorrhage [Unknown]
  - Drug ineffective [Unknown]
